FAERS Safety Report 10034620 (Version 1)
Quarter: 2014Q1

REPORT INFORMATION
  Report Type: Report from Study
  Country: GB (occurrence: GB)
  Receive Date: 20140325
  Receipt Date: 20140325
  Transmission Date: 20141002
  Serious: Yes (Death, Other)
  Sender: FDA-Public Use
  Company Number: GB-ROCHE-1370749

PATIENT
  Sex: Female

DRUGS (1)
  1. RITUXIMAB [Suspect]
     Indication: RHEUMATOID ARTHRITIS
     Dosage: LAST DOSE PRIOR TO EVENT: 10/FEB/2011
     Route: 065
     Dates: start: 20080815

REACTIONS (4)
  - Sepsis [Fatal]
  - Gangrene [Unknown]
  - Peripheral vascular disorder [Unknown]
  - Parkinson^s disease [Unknown]
